FAERS Safety Report 10184246 (Version 1)
Quarter: 2014Q2

REPORT INFORMATION
  Report Type: Spontaneous
  Country: US (occurrence: US)
  Receive Date: 20140520
  Receipt Date: 20140520
  Transmission Date: 20141212
  Serious: No
  Sender: FDA-Public Use
  Company Number: US-ASTRAZENECA-2014SE23241

PATIENT
  Sex: Female

DRUGS (1)
  1. RHINOCORT AQUA [Suspect]
     Indication: MULTIPLE ALLERGIES
     Dosage: 1 SPRAY PER NOSTRIL DAILY
     Route: 045

REACTIONS (2)
  - Visual impairment [Not Recovered/Not Resolved]
  - Epistaxis [Not Recovered/Not Resolved]
